FAERS Safety Report 13588768 (Version 1)
Quarter: 2017Q2

REPORT INFORMATION
  Report Type: Spontaneous
  Country: US (occurrence: US)
  Receive Date: 20170529
  Receipt Date: 20170529
  Transmission Date: 20170830
  Serious: Yes (Hospitalization)
  Sender: FDA-Public Use
  Company Number: US-ASTRAZENECA-2017SE55057

PATIENT
  Age: 63 Year
  Sex: Male
  Weight: 86.2 kg

DRUGS (7)
  1. METOPROLOL TARTRATE. [Suspect]
     Active Substance: METOPROLOL TARTRATE
     Route: 048
     Dates: start: 2009
  2. SYMBICORT [Suspect]
     Active Substance: BUDESONIDE\FORMOTEROL FUMARATE DIHYDRATE
     Indication: ASTHMA
     Dosage: 160/4.5MCG, 2 INHALATIONS TWICE DAILY
     Route: 055
     Dates: start: 2012
  3. PROVENTIL HFA [Concomitant]
     Active Substance: ALBUTEROL SULFATE
     Indication: ILL-DEFINED DISORDER
     Dosage: AS NEEDED UP TO 4 TIMES PER DAY.
     Route: 055
     Dates: start: 2012
  4. SYMBICORT [Suspect]
     Active Substance: BUDESONIDE\FORMOTEROL FUMARATE DIHYDRATE
     Indication: CHRONIC OBSTRUCTIVE PULMONARY DISEASE
     Dosage: 160/4.5MCG, 2 INHALATIONS TWICE DAILY
     Route: 055
     Dates: start: 2012
  5. BABY ASPIRIN [Concomitant]
     Active Substance: ASPIRIN
     Dosage: 81MG, 2 TABLETS IN THE MORNING AND 1 TABLET IN THE EVENING.
     Route: 048
     Dates: start: 2009
  6. ALBUTEROL NEBULIZER SOLUTION [Concomitant]
     Active Substance: ALBUTEROL
     Route: 055
     Dates: start: 2012
  7. SPIRIVA [Concomitant]
     Active Substance: TIOTROPIUM BROMIDE MONOHYDRATE

REACTIONS (7)
  - Upper respiratory tract infection [Unknown]
  - Dyspnoea [Unknown]
  - Productive cough [Unknown]
  - Cough [Unknown]
  - Rhinorrhoea [Unknown]
  - Vascular occlusion [Unknown]
  - Gait disturbance [Unknown]

NARRATIVE: CASE EVENT DATE: 2012
